FAERS Safety Report 5509047-5 (Version None)
Quarter: 2007Q4

REPORT INFORMATION
  Report Type: 
  Country: None (occurrence: None)
  Receive Date: 20071105
  Receipt Date: 20071019
  Transmission Date: 20080405
  Serious: Yes (Death)
  Sender: FDA-Public Use
  Company Number: 2007001758

PATIENT
  Age: 67 Year
  Sex: Male

DRUGS (10)
  1. ERLOTINIB(ERLOTINIB HCL) (TABLET) (ERLOTINIB HCL) [Suspect]
     Indication: GASTROINTESTINAL CARCINOMA
     Dosage: 150 MG, QD, ORAL
     Route: 048
     Dates: start: 20070613, end: 20070905
  2. BEVACIZUMAB(INJECTION FOR INFUSION) [Suspect]
     Indication: GASTRIC CANCER
     Dosage: 450 MG,Q2W, INTRAVENOUS
     Route: 042
     Dates: start: 20070613, end: 20070910
  3. FENTANYL [Suspect]
     Indication: PAIN
     Dosage: 50 MCG
     Dates: start: 20070607, end: 20070801
  4. ACETAMINOPHEN [Suspect]
     Indication: PAIN
     Dosage: 1000 MG PRN, ORAL
     Route: 048
     Dates: start: 20070808, end: 20070808
  5. MORPHINE [Suspect]
     Indication: PAIN
     Dosage: 30 MG PRN, ORAL
     Route: 048
  6. IMODIUM [Suspect]
     Dosage: 1 MG PRN, ORAL
     Route: 048
     Dates: start: 20070627
  7. PREDNISONE [Suspect]
     Indication: NAUSEA
     Dosage: 25 MG
     Dates: start: 20070710
  8. SUPPLEMENT NOS [Suspect]
     Indication: WEIGHT CONTROL
     Dates: start: 20070627
  9. GABAPENTIN [Suspect]
     Indication: PAIN
     Dosage: 900 MG, ORAL
     Route: 048
     Dates: start: 20070808, end: 20070813
  10. METHADONE HCL [Suspect]
     Indication: PAIN
     Dosage: 90 MG, ORAL
     Route: 048

REACTIONS (6)
  - BLOOD ALBUMIN DECREASED [None]
  - BLOOD ALKALINE PHOSPHATASE INCREASED [None]
  - DIARRHOEA [None]
  - FEELING ABNORMAL [None]
  - HAEMOGLOBIN DECREASED [None]
  - SKIN DISORDER [None]
